FAERS Safety Report 16872912 (Version 1)
Quarter: 2019Q4

REPORT INFORMATION
  Report Type: Spontaneous
  Country: US (occurrence: US)
  Receive Date: 20191001
  Receipt Date: 20191001
  Transmission Date: 20200122
  Serious: Yes (Hospitalization)
  Sender: FDA-Public Use
  Company Number: None

PATIENT
  Age: 17 Year
  Sex: Female

DRUGS (3)
  1. KALYDECO [Suspect]
     Active Substance: IVACAFTOR
     Indication: CYSTIC FIBROSIS
     Route: 048
     Dates: start: 20120102
  2. PULMOZYME [Concomitant]
     Active Substance: DORNASE ALFA
     Dates: start: 20180201
  3. TOBRAMYCIN INH SOLUTION [Concomitant]
     Dates: start: 20190411

REACTIONS (2)
  - Sinus congestion [None]
  - Pulmonary function test decreased [None]

NARRATIVE: CASE EVENT DATE: 20190901
